FAERS Safety Report 4506595-1 (Version None)
Quarter: 2004Q4

REPORT INFORMATION
  Report Type: 
  Country: None (occurrence: None)
  Receive Date: 20041122
  Receipt Date: 20041018
  Transmission Date: 20050328
  Serious: Yes (Death, Other)
  Sender: FDA-Public Use
  Company Number: PHRM2004FR03124

PATIENT
  Age: 36 Year
  Sex: Male

DRUGS (4)
  1. LEPONEX [Suspect]
     Indication: BIPOLAR I DISORDER
     Dosage: 500 MG/DAY
     Route: 048
     Dates: start: 20040616, end: 20041012
  2. CLOPIXOL [Concomitant]
     Indication: BIPOLAR I DISORDER
     Dosage: 250 MG DAILY
     Route: 048
     Dates: start: 20041005, end: 20041006
  3. DEPAKOTE [Suspect]
     Indication: BIPOLAR I DISORDER
     Dosage: 2.5 G DAILY
     Route: 048
     Dates: start: 20040608, end: 20041012
  4. LOXAPINE HCL [Concomitant]
     Indication: BIPOLAR I DISORDER
     Dosage: 100 MG DAILY
     Route: 048
     Dates: start: 20041001, end: 20041009

REACTIONS (8)
  - ABDOMINAL PAIN [None]
  - ABDOMINAL RIGIDITY [None]
  - BALANCE DISORDER [None]
  - CONSTIPATION [None]
  - DYSPHAGIA [None]
  - FAECALOMA [None]
  - INTESTINAL OBSTRUCTION [None]
  - SPEECH DISORDER [None]
